FAERS Safety Report 13027766 (Version 2)
Quarter: 2016Q4

REPORT INFORMATION
  Report Type: Spontaneous
  Country: DE (occurrence: DE)
  Receive Date: 20161214
  Receipt Date: 20161216
  Transmission Date: 20170207
  Serious: Yes (Other)
  Sender: FDA-Public Use
  Company Number: DE-MEDA-2016120039

PATIENT
  Sex: Male

DRUGS (2)
  1. ALLERGODIL AKUT NASENSPRAY [Suspect]
     Active Substance: AZELASTINE HYDROCHLORIDE
     Indication: SEASONAL ALLERGY
     Dosage: 1-2 TIMES DAILY
     Route: 045
  2. ELIQUIS [Concomitant]
     Active Substance: APIXABAN
     Indication: ANTICOAGULANT THERAPY
     Route: 048

REACTIONS (2)
  - Extrasystoles [Unknown]
  - Heart rate irregular [Unknown]
